FAERS Safety Report 8958121 (Version 1)
Quarter: 2012Q4

REPORT INFORMATION
  Report Type: Report from Study
  Country: DE (occurrence: DE)
  Receive Date: 20121211
  Receipt Date: 20121211
  Transmission Date: 20130627
  Serious: Yes (Hospitalization)
  Sender: FDA-Public Use
  Company Number: PHHO2012DE017662

PATIENT
  Age: 72 Year
  Sex: Female
  Weight: 53 kg

DRUGS (3)
  1. DOXORUBICIN [Suspect]
     Indication: THYROID CANCER
     Dosage: 100 mg, UNK
     Route: 042
     Dates: start: 20121114
  2. AFINITOR [Suspect]
     Indication: THYROID CANCER
     Dosage: 5 mg, UNK
     Route: 048
     Dates: start: 20121114, end: 20121122
  3. AFINITOR [Suspect]
     Dosage: 5 mg, UNK
     Route: 048
     Dates: start: 20121126

REACTIONS (1)
  - Mucosal inflammation [Recovered/Resolved]
